FAERS Safety Report 9938624 (Version 1)
Quarter: 2014Q1

REPORT INFORMATION
  Report Type: Report from Study
  Country: FR (occurrence: FR)
  Receive Date: 20140303
  Receipt Date: 20140303
  Transmission Date: 20141002
  Serious: Yes (Hospitalization)
  Sender: FDA-Public Use
  Company Number: FR-ROCHE-1354204

PATIENT
  Sex: Female

DRUGS (7)
  1. RITUXIMAB [Suspect]
     Indication: RHEUMATOID ARTHRITIS
     Route: 065
     Dates: start: 20061121
  2. RITUXIMAB [Suspect]
     Route: 065
     Dates: start: 20061205
  3. RITUXIMAB [Suspect]
     Route: 065
     Dates: start: 20071106
  4. RITUXIMAB [Suspect]
     Route: 065
     Dates: start: 20071123
  5. RITUXIMAB [Suspect]
     Route: 065
     Dates: start: 20081106
  6. RITUXIMAB [Suspect]
     Route: 065
     Dates: start: 20081120, end: 20121025
  7. LEFLUNOMID [Concomitant]
     Route: 065

REACTIONS (11)
  - Iron deficiency anaemia [Not Recovered/Not Resolved]
  - Dry eye [Not Recovered/Not Resolved]
  - Skin ulcer [Not Recovered/Not Resolved]
  - Hypotension [Recovered/Resolved]
  - Asthenia [Recovered/Resolved]
  - Cough [Not Recovered/Not Resolved]
  - Bronchitis [Recovered/Resolved]
  - Bronchopneumonia [Recovered/Resolved]
  - Urinary tract infection [Not Recovered/Not Resolved]
  - Upper respiratory tract infection [Not Recovered/Not Resolved]
  - Skin ulcer [Not Recovered/Not Resolved]
